FAERS Safety Report 8241272-5 (Version None)
Quarter: 2012Q1

REPORT INFORMATION
  Report Type: 
  Country: None (occurrence: None)
  Receive Date: 20120328
  Receipt Date: 20120319
  Transmission Date: 20120608
  Serious: Yes (Other)
  Sender: FDA-Public Use
  Company Number: CA-JNJFOC-20120208491

PATIENT
  Age: 27 Year
  Sex: Female
  Weight: 52.16 kg

DRUGS (2)
  1. REMICADE [Suspect]
     Indication: CROHN'S DISEASE
     Dosage: TREATED WITH INFLIXIMAB THERAPY FOR PAST 3 1/2-4 YEARS.
     Route: 042
     Dates: start: 20080101
  2. REMICADE [Suspect]
     Indication: COLITIS ULCERATIVE
     Dosage: TREATED WITH INFLIXIMAB THERAPY FOR PAST 3 1/2-4 YEARS.
     Route: 042
     Dates: start: 20080101

REACTIONS (3)
  - ANAEMIA [None]
  - DIARRHOEA [None]
  - LEUKAEMIA [None]
